FAERS Safety Report 9391384 (Version 2)
Quarter: 2013Q3

REPORT INFORMATION
  Report Type: Spontaneous
  Country: US (occurrence: US)
  Receive Date: 20130709
  Receipt Date: 20130816
  Transmission Date: 20140515
  Serious: Yes (Death, Hospitalization)
  Sender: FDA-Public Use
  Company Number: US-ASTELLAS-2013US007062

PATIENT
  Sex: Male
  Weight: 79 kg

DRUGS (1)
  1. AMBISOME [Suspect]
     Indication: MENINGITIS CRYPTOCOCCAL
     Dosage: 50 MG, UNKNOWN/D
     Route: 042
     Dates: start: 20130531, end: 20130602

REACTIONS (6)
  - Acute coronary syndrome [Unknown]
  - Septic shock [Fatal]
  - Disseminated cryptococcosis [Fatal]
  - Dialysis disequilibrium syndrome [Fatal]
  - Accelerated hypertension [Fatal]
  - Multi-organ disorder [Fatal]
